APPROVED DRUG PRODUCT: DICLOFENAC SODIUM
Active Ingredient: DICLOFENAC SODIUM
Strength: 3%
Dosage Form/Route: GEL;TOPICAL
Application: A208301 | Product #001 | TE Code: AB
Applicant: GLENMARK PHARMACEUTICALS LTD
Approved: Sep 13, 2016 | RLD: No | RS: No | Type: RX